FAERS Safety Report 16931578 (Version 1)
Quarter: 2019Q4

REPORT INFORMATION
  Report Type: Spontaneous
  Country: US (occurrence: US)
  Receive Date: 20191017
  Receipt Date: 20191017
  Transmission Date: 20200122
  Serious: Yes (Life-Threatening, Other)
  Sender: FDA-Public Use
  Company Number: None

PATIENT
  Age: 45 Year
  Sex: Female

DRUGS (1)
  1. LIDOCAINE 2% 500 MG IN 135 ML BAG [Suspect]
     Active Substance: LIDOCAINE
     Indication: BRACHIAL PLEXOPATHY
     Dosage: ?          OTHER FREQUENCY:ONCE;?
     Route: 041

REACTIONS (3)
  - Swollen tongue [None]
  - Paraesthesia oral [None]
  - Hypersensitivity [None]

NARRATIVE: CASE EVENT DATE: 20191016
